FAERS Safety Report 6207706-2 (Version None)
Quarter: 2009Q2

REPORT INFORMATION
  Report Type: 
  Country: None (occurrence: None)
  Receive Date: 20090528
  Receipt Date: 20090520
  Transmission Date: 20091009
  Serious: Yes (Other)
  Sender: FDA-Public Use
  Company Number: JP-MERCK-0905USA01889

PATIENT
  Age: 22 Year
  Sex: Male

DRUGS (5)
  1. PEPCID [Suspect]
     Route: 042
     Dates: start: 20090412, end: 20090415
  2. LACTEC [Concomitant]
     Route: 065
     Dates: start: 20090412, end: 20090419
  3. CLINDAMYCIN [Suspect]
     Route: 042
     Dates: start: 20090412, end: 20090415
  4. SOLITA T-3 [Concomitant]
     Route: 065
     Dates: start: 20090412, end: 20090419
  5. PERDIPINE [Concomitant]
     Route: 065
     Dates: start: 20090412, end: 20090422

REACTIONS (1)
  - RHABDOMYOLYSIS [None]
